FAERS Safety Report 6841639-3 (Version None)
Quarter: 2010Q3

REPORT INFORMATION
  Report Type: 
  Country: None (occurrence: None)
  Receive Date: 20100714
  Receipt Date: 20070924
  Transmission Date: 20110219
  Serious: Yes (Other)
  Sender: FDA-Public Use
  Company Number: US-PFIZER INC-2007058502

PATIENT
  Sex: Male
  Weight: 56.8 kg

DRUGS (10)
  1. CHANTIX [Suspect]
     Indication: SMOKING CESSATION THERAPY
     Dates: start: 20070504, end: 20070710
  2. SPIRIVA [Concomitant]
  3. CLONAZEPAM [Concomitant]
  4. PROTONIX [Concomitant]
  5. FAMOTIDINE [Concomitant]
  6. FOLIC ACID [Concomitant]
  7. SALBUTAMOL [Concomitant]
     Route: 055
  8. CYCLOBENZAPRINE [Concomitant]
  9. SALBUTAMOL SULFATE [Concomitant]
  10. FLUTICASONE PROPIONATE [Concomitant]

REACTIONS (3)
  - PAROSMIA [None]
  - VISION BLURRED [None]
  - WEIGHT INCREASED [None]
